FAERS Safety Report 5775522-1 (Version None)
Quarter: 2008Q2

REPORT INFORMATION
  Report Type: 
  Country: None (occurrence: None)
  Receive Date: 20080601
  Receipt Date: 20080109
  Transmission Date: 20081010
  Serious: No
  Sender: FDA-Public Use
  Company Number: US200711003290

PATIENT
  Sex: Female

DRUGS (5)
  1. BYETTA [Suspect]
     Indication: TYPE 2 DIABETES MELLITUS
     Dosage: 5 UG, 2/D, SUBCUTANEOUS
     Route: 058
     Dates: start: 20071009, end: 20071109
  2. GLUCOPHAGE [Concomitant]
  3. HUMALOG /01500801/ (INSULIN LISPRO, INSULIN LISPRO PROTAMINE SUSPENSIO [Concomitant]
  4. LODINE [Concomitant]
  5. LYRICA [Concomitant]

REACTIONS (5)
  - ARTHRITIS [None]
  - HYPOAESTHESIA [None]
  - OEDEMA PERIPHERAL [None]
  - PAIN IN EXTREMITY [None]
  - SENSATION OF HEAVINESS [None]
